FAERS Safety Report 20282726 (Version 1)
Quarter: 2022Q1

REPORT INFORMATION
  Report Type: Spontaneous
  Country: US (occurrence: None)
  Receive Date: 20220101
  Receipt Date: 20220101
  Transmission Date: 20220423
  Serious: No
  Sender: FDA-Public Use
  Company Number: None

PATIENT
  Age: 73 Year
  Sex: Male

DRUGS (1)
  1. NALTREXONE [Suspect]
     Active Substance: NALTREXONE
     Indication: Substance use disorder
     Route: 030
     Dates: start: 20190514, end: 20191226

REACTIONS (6)
  - Injection site swelling [None]
  - Myalgia [None]
  - Back pain [None]
  - Paraesthesia [None]
  - Gait disturbance [None]
  - Therapy cessation [None]

NARRATIVE: CASE EVENT DATE: 20191219
